FAERS Safety Report 21887306 (Version 1)
Quarter: 2023Q1

REPORT INFORMATION
  Report Type: Spontaneous
  Country: US (occurrence: US)
  Receive Date: 20230119
  Receipt Date: 20230119
  Transmission Date: 20230418
  Serious: No
  Sender: FDA-Public Use
  Company Number: US-BRISTOL-MYERS SQUIBB COMPANY-2023-009261

PATIENT
  Age: 76 Year
  Sex: Female

DRUGS (2)
  1. OPDIVO [Suspect]
     Active Substance: NIVOLUMAB
     Indication: Lung neoplasm malignant
     Dosage: DOSE : PLEASE SEE DESCRIBE EVENTS;     FREQ : PLEASE SEE DESCRIBE EVENTS
  2. YERVOY [Suspect]
     Active Substance: IPILIMUMAB
     Indication: Lung neoplasm malignant

REACTIONS (2)
  - Adverse event [Unknown]
  - Intentional product use issue [Unknown]
